FAERS Safety Report 20951912 (Version 1)
Quarter: 2022Q2

REPORT INFORMATION
  Report Type: Spontaneous
  Country: US (occurrence: None)
  Receive Date: 20220611
  Receipt Date: 20220611
  Transmission Date: 20220721
  Serious: No
  Sender: FDA-Public Use
  Company Number: None

PATIENT
  Age: 29 Year
  Sex: Female
  Weight: 117 kg

DRUGS (1)
  1. HOMEOPATHICS [Suspect]
     Active Substance: HOMEOPATHICS
     Indication: Snoring
     Dates: start: 20220223, end: 20220531

REACTIONS (2)
  - Respiratory tract infection [None]
  - Impaired work ability [None]

NARRATIVE: CASE EVENT DATE: 20220512
